FAERS Safety Report 8844345 (Version 2)
Quarter: 2012Q4

REPORT INFORMATION
  Report Type: 
  Country: ID (occurrence: ID)
  Receive Date: 20121017
  Receipt Date: 20121119
  Transmission Date: 20130627
  Serious: Yes (Death, Other)
  Sender: FDA-Public Use
  Company Number: ID-BAYER-2012-106025

PATIENT
  Age: 48 Year
  Sex: Male

DRUGS (1)
  1. NEXAVAR [Suspect]
     Indication: CARCINOMA HEPATOCELLULAR
     Dosage: 2x1
     Route: 048
     Dates: start: 20120117

REACTIONS (5)
  - Hepatocellular carcinoma [Fatal]
  - Loss of consciousness [None]
  - Dyspnoea [None]
  - Blood pressure decreased [None]
  - Metastases to lung [Not Recovered/Not Resolved]
